FAERS Safety Report 10454435 (Version 2)
Quarter: 2014Q4

REPORT INFORMATION
  Report Type: Spontaneous
  Country: TR (occurrence: TR)
  Receive Date: 20140915
  Receipt Date: 20141010
  Transmission Date: 20150528
  Serious: Yes (Hospitalization)
  Sender: FDA-Public Use
  Company Number: TR-BAXTER-2014BAX053696

PATIENT
  Age: 1 Day
  Sex: Male
  Weight: 3.3 kg

DRUGS (2)
  1. KIOVIG [Suspect]
     Active Substance: HUMAN IMMUNOGLOBULIN G
     Indication: OFF LABEL USE
  2. KIOVIG [Suspect]
     Active Substance: HUMAN IMMUNOGLOBULIN G
     Indication: RHESUS INCOMPATIBILITY
     Dosage: 0.8 G/KG
     Route: 042
     Dates: start: 20140716, end: 20140716

REACTIONS (2)
  - Hypotension [Recovered/Resolved with Sequelae]
  - Bradycardia [Recovered/Resolved with Sequelae]

NARRATIVE: CASE EVENT DATE: 20140716
